FAERS Safety Report 9934494 (Version 2)
Quarter: 2014Q1

REPORT INFORMATION
  Report Type: Report from Study
  Country: US (occurrence: US)
  Receive Date: 20140228
  Receipt Date: 20140228
  Transmission Date: 20141002
  Serious: Yes (Hospitalization)
  Sender: FDA-Public Use
  Company Number: US-ABBVIE-09P-163-0586752-00

PATIENT
  Age: 56 Year
  Sex: Male
  Weight: 68.1 kg

DRUGS (13)
  1. HUMIRA 40 MG/0.8 ML PEN [Suspect]
     Indication: RHEUMATOID ARTHRITIS
     Dates: start: 200909
  2. HUMIRA 40 MG/0.8 ML PEN [Suspect]
     Dates: start: 20090302
  3. HUMIRA 40 MG/0.8 ML PEN [Suspect]
     Dates: start: 200909
  4. HUMIRA 40 MG/0.8 ML PEN [Suspect]
     Dates: start: 2011
  5. PREDNISONE [Concomitant]
     Indication: RHEUMATOID ARTHRITIS
  6. CELEBREX [Concomitant]
     Indication: RHEUMATOID ARTHRITIS
  7. OMEPRAZOLE [Concomitant]
     Indication: GASTRIC DISORDER
     Dosage: 20 MG DAILY
  8. HYDROCODONE W/APAP [Concomitant]
     Indication: PAIN
     Dosage: 5/500 MG AS NEEDED
  9. MELOXICAM [Concomitant]
     Indication: RHEUMATOID ARTHRITIS
  10. LEVOTHYROXINE [Concomitant]
     Indication: HYPOTHYROIDISM
  11. ALPRAZOLAM [Concomitant]
     Indication: GASTRIC DISORDER
  12. HYDROCODONE [Concomitant]
     Indication: PAIN
  13. FLU VACCINE [Concomitant]
     Indication: ANTIVIRAL PROPHYLAXIS

REACTIONS (24)
  - Colitis [Recovered/Resolved]
  - Intestinal haemorrhage [Recovered/Resolved]
  - Intestinal obstruction [Recovered/Resolved]
  - Abdominal pain upper [Recovered/Resolved]
  - Injection site pain [Not Recovered/Not Resolved]
  - Injection site pain [Not Recovered/Not Resolved]
  - Injection site extravasation [Unknown]
  - Blood thyroid stimulating hormone decreased [Not Recovered/Not Resolved]
  - Influenza [Unknown]
  - Nasopharyngitis [Not Recovered/Not Resolved]
  - Pneumonia [Unknown]
  - Diarrhoea [Recovered/Resolved]
  - Nausea [Recovered/Resolved]
  - Oropharyngeal pain [Recovered/Resolved]
  - Headache [Recovered/Resolved]
  - Pain [Recovered/Resolved]
  - Chills [Recovered/Resolved]
  - Pyrexia [Recovered/Resolved]
  - Epistaxis [Not Recovered/Not Resolved]
  - Dyspnoea [Recovered/Resolved]
  - Fatigue [Unknown]
  - Productive cough [Not Recovered/Not Resolved]
  - Nasal congestion [Not Recovered/Not Resolved]
  - Gastrooesophageal reflux disease [Unknown]
